FAERS Safety Report 25903002 (Version 2)
Quarter: 2025Q4

REPORT INFORMATION
  Report Type: Spontaneous
  Country: US (occurrence: US)
  Receive Date: 20251009
  Receipt Date: 20251018
  Transmission Date: 20260117
  Serious: No
  Sender: BRISTOL-MYERS SQUIBB COMPANY
  Company Number: US-BRISTOL-MYERS SQUIBB COMPANY-2025-138437

PATIENT
  Age: 88 Year
  Sex: Female

DRUGS (1)
  1. IDHIFA [Suspect]
     Active Substance: ENASIDENIB MESYLATE
     Indication: Acute myeloid leukaemia
     Dosage: 1 TABLET ONCE DAILY
     Dates: start: 20250918

REACTIONS (3)
  - Cough [Unknown]
  - Fatigue [Unknown]
  - Muscle tension dysphonia [Unknown]
